FAERS Safety Report 22160234 (Version 4)
Quarter: 2023Q2

REPORT INFORMATION
  Report Type: Spontaneous
  Country: US (occurrence: US)
  Receive Date: 20230331
  Receipt Date: 20230517
  Transmission Date: 20230721
  Serious: No
  Sender: FDA-Public Use
  Company Number: US-002147023-NVSC2023US075083

PATIENT
  Sex: Female

DRUGS (1)
  1. XIIDRA [Suspect]
     Active Substance: LIFITEGRAST
     Indication: Dry eye
     Dosage: 1 DRP, BID
     Route: 047

REACTIONS (5)
  - Eyelash hyperpigmentation [Unknown]
  - Eyelid rash [Unknown]
  - Swelling of eyelid [Unknown]
  - Rash [Unknown]
  - Eye pruritus [Unknown]
